FAERS Safety Report 25762642 (Version 1)
Quarter: 2025Q3

REPORT INFORMATION
  Report Type: Spontaneous
  Country: US (occurrence: US)
  Receive Date: 20250904
  Receipt Date: 20250904
  Transmission Date: 20251021
  Serious: No
  Sender: BOEHRINGER INGELHEIM
  Company Number: US-BoehringerIngelheim-2025-BI-093326

PATIENT
  Age: 59 Year
  Sex: Female

DRUGS (5)
  1. JARDIANCE [Suspect]
     Active Substance: EMPAGLIFLOZIN
     Indication: Product used for unknown indication
  2. TRULICITY [Suspect]
     Active Substance: DULAGLUTIDE
     Indication: Product used for unknown indication
  3. TRULICITY [Suspect]
     Active Substance: DULAGLUTIDE
  4. TRULICITY [Suspect]
     Active Substance: DULAGLUTIDE
  5. TRULICITY [Suspect]
     Active Substance: DULAGLUTIDE

REACTIONS (4)
  - Glycosylated haemoglobin increased [Unknown]
  - Drug ineffective [Unknown]
  - Illness [Unknown]
  - Fungal infection [Unknown]
